FAERS Safety Report 7071768-3 (Version None)
Quarter: 2010Q4

REPORT INFORMATION
  Report Type: 
  Country: None (occurrence: None)
  Receive Date: 20101029
  Receipt Date: 20100128
  Transmission Date: 20110411
  Serious: No
  Sender: FDA-Public Use
  Company Number: A0812403A

PATIENT
  Age: 51 Year
  Sex: Female

DRUGS (1)
  1. ADVAIR DISKUS 100/50 [Suspect]
     Indication: ASTHMA
     Dosage: 1PUFF TWICE PER DAY
     Route: 055
     Dates: start: 20060101

REACTIONS (11)
  - ARTHRALGIA [None]
  - ASTHENIA [None]
  - COUGH [None]
  - DECREASED ACTIVITY [None]
  - EYE DISORDER [None]
  - FALL [None]
  - MUSCLE TWITCHING [None]
  - MUSCULAR WEAKNESS [None]
  - MYOSITIS [None]
  - ORAL FUNGAL INFECTION [None]
  - RASH [None]
